FAERS Safety Report 5876226-7 (Version None)
Quarter: 2008Q3

REPORT INFORMATION
  Report Type: 
  Country: None (occurrence: None)
  Receive Date: 20080908
  Receipt Date: 20080908
  Transmission Date: 20090109
  Serious: Yes (Other)
  Sender: FDA-Public Use
  Company Number: None

PATIENT
  Age: 17 Year
  Sex: Female
  Weight: 48.5349 kg

DRUGS (2)
  1. BACTRIM [Suspect]
     Indication: URINARY TRACT INFECTION
     Dates: start: 20040314, end: 20040319
  2. BACTRIM [Suspect]
     Indication: URINARY TRACT INFECTION
     Dates: start: 20040914, end: 20040919

REACTIONS (3)
  - INFLAMMATION [None]
  - RASH ERYTHEMATOUS [None]
  - SKIN DISCOLOURATION [None]
